FAERS Safety Report 8352651-X (Version None)
Quarter: 2012Q2

REPORT INFORMATION
  Report Type: 
  Country: None (occurrence: None)
  Receive Date: 20120511
  Receipt Date: 20120427
  Transmission Date: 20120825
  Serious: Yes (Other)
  Sender: FDA-Public Use
  Company Number: GB-MYLANLABS-2012S1008755

PATIENT
  Age: 70 Year
  Sex: Female

DRUGS (1)
  1. VENLAFAXINE [Suspect]
     Indication: MENOPAUSAL SYMPTOMS

REACTIONS (2)
  - PRE-EXISTING CONDITION IMPROVED [None]
  - THERAPEUTIC RESPONSE UNEXPECTED [None]
